FAERS Safety Report 23640051 (Version 2)
Quarter: 2024Q3

REPORT INFORMATION
  Report Type: Spontaneous
  Country: FR (occurrence: FR)
  Receive Date: 20240317
  Receipt Date: 20240924
  Transmission Date: 20241016
  Serious: Yes (Hospitalization, Other)
  Sender: SANDOZ
  Company Number: FR-UCBSA-2017047307

PATIENT
  Age: 27 Year
  Sex: Male
  Weight: 72 kg

DRUGS (9)
  1. AUGMENTIN [Suspect]
     Active Substance: AMOXICILLIN\CLAVULANATE POTASSIUM
     Indication: Pyrexia
     Dosage: 3 G, QD (DAILY), 00852501, START DATE: 31-JUL-2017, STOP DATE: 10-AUG-2017
     Route: 042
  2. LOMUSTINE [Suspect]
     Active Substance: LOMUSTINE
     Indication: Glioneuronal tumour
     Dosage: 160 MG, QD (DAILY), START DATE: 01-MAR-2017 AND STOP DATE: 12-JUL-2017
     Route: 048
  3. KEPPRA [Suspect]
     Active Substance: LEVETIRACETAM
     Indication: Epilepsy
     Dosage: 750 MG, BID, 1500 MG, QD (2 DF DAILY)
     Route: 048
  4. PROCARBAZINE HYDROCHLORIDE [Suspect]
     Active Substance: PROCARBAZINE HYDROCHLORIDE
     Indication: Glioneuronal tumour
     Dosage: 100 MG, QD (DAILY), START DATE: 08-MAR-2017, STOP DATE: 01-AUG-2017
     Route: 048
  5. ACETAMINOPHEN [Suspect]
     Active Substance: ACETAMINOPHEN
     Indication: Pyrexia
     Dosage: 4 G, QD, START DATE:31-JUL-2017, STOP DATE: 07-AUG-2017
     Route: 048
  6. ACETAMINOPHEN [Suspect]
     Active Substance: ACETAMINOPHEN
     Indication: Pyrexia
     Dosage: 4 G, QD (DAILY), START DATE: 31-JUL-2017, STOP DATE:07-AUG-2017
     Route: 042
  7. LEVOFLOXACIN [Suspect]
     Active Substance: LEVOFLOXACIN
     Indication: Pyrexia
     Dosage: UNK, START DATE: 04-AUG-2017, STOP DATE:10-AUG-2017
     Route: 048
  8. VINCRISTINE [Suspect]
     Active Substance: VINCRISTINE
     Indication: Glioneuronal tumour
     Dosage: 2 MG, QD (DAILY), START DATE: 08-MAR-2017, STOP DATE: 19-JUL-2017
     Route: 042
  9. TEMODAL [Concomitant]
     Active Substance: TEMOZOLOMIDE
     Indication: Glioneuronal tumour
     Dosage: UNK
     Route: 065
     Dates: end: 202301

REACTIONS (4)
  - Neutropenia [Unknown]
  - Liver injury [Recovering/Resolving]
  - Inappropriate schedule of product administration [Recovered/Resolved]
  - Overdose [Recovered/Resolved]

NARRATIVE: CASE EVENT DATE: 20170301
